FAERS Safety Report 13753274 (Version 1)
Quarter: 2017Q3

REPORT INFORMATION
  Report Type: Report from Study
  Country: None (occurrence: US)
  Receive Date: 20170714
  Receipt Date: 20170714
  Transmission Date: 20171127
  Serious: No
  Sender: FDA-Public Use
  Company Number: US-IPSEN BIOPHARMACEUTICALS, INC.-2013-0588

PATIENT
  Sex: Female
  Weight: 42 kg

DRUGS (1)
  1. INCRELEX [Suspect]
     Active Substance: MECASERMIN
     Indication: PRIMARY INSULIN LIKE GROWTH FACTOR-1 DEFICIENCY
     Route: 058
     Dates: start: 20121212

REACTIONS (5)
  - Neck pain [None]
  - Injection site pain [None]
  - Muscle strain [None]
  - Weight decreased [Unknown]
  - Eyelid oedema [None]
